FAERS Safety Report 6713363-9 (Version None)
Quarter: 2010Q2

REPORT INFORMATION
  Report Type: 
  Country: None (occurrence: None)
  Receive Date: 20100503
  Receipt Date: 20100419
  Transmission Date: 20101027
  Serious: Yes (Disabling, Other)
  Sender: FDA-Public Use
  Company Number: 2010AP000812

PATIENT
  Age: 81 Year
  Sex: Female

DRUGS (5)
  1. PRAVASTATIN SODIUM [Suspect]
     Dosage: 20 MG; 10 MG
     Dates: start: 20100322
  2. FUROSEMIDE [Concomitant]
  3. MIRTAZAPINE [Concomitant]
  4. WARFARIN SODIUM [Concomitant]
  5. ZOPICLONE (ZOPICLONE) [Concomitant]

REACTIONS (3)
  - ABNORMAL DREAMS [None]
  - AGGRESSION [None]
  - EMOTIONAL DISTRESS [None]
